FAERS Safety Report 4533737-4 (Version None)
Quarter: 2004Q4

REPORT INFORMATION
  Report Type: 
  Country: None (occurrence: None)
  Receive Date: 20041221
  Receipt Date: 20041207
  Transmission Date: 20050328
  Serious: Yes (Other)
  Sender: FDA-Public Use
  Company Number: CN-GLAXOSMITHKLINE-B0362280A

PATIENT

DRUGS (1)
  1. HEPTODIN [Suspect]
     Indication: HEPATITIS B
     Route: 048

REACTIONS (4)
  - ALANINE AMINOTRANSFERASE INCREASED [None]
  - DISEASE RECURRENCE [None]
  - HBV DNA INCREASED [None]
  - HEPATITIS B [None]
